FAERS Safety Report 8707263 (Version 2)
Quarter: 2012Q4

REPORT INFORMATION
  Report Type: 
  Country: US (occurrence: US)
  Receive Date: 20120803
  Receipt Date: 20120920
  Transmission Date: 20130627
  Serious: Yes (Hospitalization, Other)
  Sender: FDA-Public Use
  Company Number: GXBR2012US001711

PATIENT
  Sex: Male

DRUGS (3)
  1. SULFADIAZINE TABLETS, USP [Suspect]
     Indication: CENTRAL NERVOUS SYSTEM INFECTION
     Dosage: 500 mg, QID3SDO
     Route: 048
     Dates: start: 20120120
  2. DARAPRIM [Concomitant]
     Indication: CENTRAL NERVOUS SYSTEM INFECTION
     Dosage: 25 mg, 3 tablets per day
  3. LEUCOVORIN CALCIUM [Concomitant]
     Indication: CENTRAL NERVOUS SYSTEM INFECTION
     Dosage: 5 mg, 3 tablets per day
     Route: 048

REACTIONS (10)
  - Brain injury [Not Recovered/Not Resolved]
  - Asthenia [Not Recovered/Not Resolved]
  - Dysstasia [Unknown]
  - Renal haemorrhage [Unknown]
  - Renal failure [Unknown]
  - Confusional state [Unknown]
  - Fall [Unknown]
  - Activities of daily living impaired [Not Recovered/Not Resolved]
  - Memory impairment [Unknown]
  - Malaise [Unknown]
